FAERS Safety Report 7782392-9 (Version None)
Quarter: 2011Q3

REPORT INFORMATION
  Report Type: 
  Country: None (occurrence: None)
  Receive Date: 20110927
  Receipt Date: 20110914
  Transmission Date: 20111222
  Serious: Yes (Other)
  Sender: FDA-Public Use
  Company Number: US-ELI_LILLY_AND_COMPANY-US201109005788

PATIENT
  Sex: Female

DRUGS (6)
  1. ZYPREXA [Suspect]
     Indication: SCHIZOPHRENIA, PARANOID TYPE
     Dosage: 2.5 MG, QD
     Dates: start: 19990101
  2. GLYBURIDE [Concomitant]
  3. HYDROCHLOROTHIAZIDE [Concomitant]
  4. ZYPREXA [Suspect]
     Dosage: 5 MG, QD
     Dates: start: 19990101
  5. STELAZINE [Concomitant]
  6. DIOVAN [Concomitant]

REACTIONS (1)
  - WEIGHT INCREASED [None]
